FAERS Safety Report 13997426 (Version 6)
Quarter: 2020Q2

REPORT INFORMATION
  Report Type: Report from Study
  Country: JP (occurrence: JP)
  Receive Date: 20170921
  Receipt Date: 20200511
  Transmission Date: 20200713
  Serious: Yes (Other)
  Sender: FDA-Public Use
  Company Number: JP-OTSUKA-2015_003491

PATIENT
  Age: 37 Year
  Sex: Male
  Weight: 85.9 kg

DRUGS (6)
  1. TOLVAPTAN [Suspect]
     Active Substance: TOLVAPTAN
     Dosage: 30 MG, QD, QAM
     Route: 048
     Dates: start: 20150318, end: 20150323
  2. TOLVAPTAN [Suspect]
     Active Substance: TOLVAPTAN
     Indication: CONGENITAL CYSTIC KIDNEY DISEASE
     Dosage: 30 MG, QD, QAM
     Route: 048
     Dates: start: 20150514, end: 20150610
  3. TOLVAPTAN [Suspect]
     Active Substance: TOLVAPTAN
     Dosage: 15 MG, QD, ONCE IN THE EVENING
     Route: 048
     Dates: start: 20150318, end: 20150610
  4. TOLVAPTAN [Suspect]
     Active Substance: TOLVAPTAN
     Dosage: 15 MG, QD, ONCE IN THE EVENING
     Route: 048
     Dates: start: 20150223, end: 20150311
  5. TOLVAPTAN [Suspect]
     Active Substance: TOLVAPTAN
     Dosage: 45 MG, QD, QAM
     Route: 048
     Dates: start: 20150324, end: 20150513
  6. TOLVAPTAN [Suspect]
     Active Substance: TOLVAPTAN
     Dosage: 45 MG, QD, QAM
     Route: 048
     Dates: start: 20150224, end: 20150311

REACTIONS (3)
  - Hepatic function abnormal [Recovered/Resolved]
  - Hypernatraemia [Recovered/Resolved]
  - Hepatic function abnormal [Recovered/Resolved]

NARRATIVE: CASE EVENT DATE: 20150311
